FAERS Safety Report 25923979 (Version 1)
Quarter: 2025Q4

REPORT INFORMATION
  Report Type: Report from Study
  Country: US (occurrence: US)
  Receive Date: 20251015
  Receipt Date: 20251015
  Transmission Date: 20260118
  Serious: Yes (Life-Threatening, Hospitalization)
  Sender: MYLAN
  Company Number: US-MYLANLABS-2025M1086927

PATIENT
  Age: 63 Year
  Sex: Female

DRUGS (5)
  1. APIXABAN [Suspect]
     Active Substance: APIXABAN
     Indication: Atrial fibrillation
     Dosage: 5 MILLIGRAM, BID
  2. LEVETIRACETAM [Suspect]
     Active Substance: LEVETIRACETAM
     Indication: Seizure
     Dosage: UNK (STARTED RECEIVING TREATMENT FOR 7 DAYS)
  3. ANDEXANET ALFA [Concomitant]
     Active Substance: ANDEXANET ALFA
     Indication: Subdural haematoma
     Dosage: 400 MILLIGRAM (RECEIVED BOLUS)
  4. ANDEXANET ALFA [Concomitant]
     Active Substance: ANDEXANET ALFA
     Dosage: 4 MILLIGRAM, QMINUTE (RECEIVED AT INFUSION FOR 120 MINUTES)
  5. PROTHROMBIN COMPLEX CONCENTRATE [Concomitant]
     Active Substance: COAGULATION FACTOR IX HUMAN\COAGULATION FACTOR VII HUMAN\COAGULATION FACTOR X HUMAN\PROTEIN C\PROTEI
     Indication: Subdural haematoma
     Dosage: UNK (RECEIVED 3800 UNITS)

REACTIONS (5)
  - Subdural haematoma [Recovered/Resolved]
  - Brain compression [Recovered/Resolved]
  - Cerebral mass effect [Recovered/Resolved]
  - Drug ineffective [Unknown]
  - Seizure [Recovered/Resolved]
